FAERS Safety Report 9363893 (Version 2)
Quarter: 2013Q3

REPORT INFORMATION
  Report Type: Spontaneous
  Country: GB (occurrence: None)
  Receive Date: 20130618
  Receipt Date: 20130701
  Transmission Date: 20140515
  Serious: Yes (Hospitalization, Other)
  Sender: FDA-Public Use
  Company Number: SYM-2013-04712

PATIENT
  Age: 36 Year
  Sex: Female

DRUGS (1)
  1. METRONIDAZOLE [Suspect]
     Indication: PARASITIC GASTROENTERITIS
     Dates: start: 20130402, end: 20130409

REACTIONS (4)
  - Psychotic disorder [None]
  - Confusional state [None]
  - Contusion [None]
  - Pain in extremity [None]
